FAERS Safety Report 23690670 (Version 1)
Quarter: 2024Q2

REPORT INFORMATION
  Report Type: Report from Study
  Country: US (occurrence: US)
  Receive Date: 20240401
  Receipt Date: 20240401
  Transmission Date: 20240716
  Serious: Yes (Other)
  Sender: FDA-Public Use
  Company Number: US-TAKEDA-2024TUS010538

PATIENT
  Sex: Male

DRUGS (1)
  1. IXAZOMIB [Suspect]
     Active Substance: IXAZOMIB
     Indication: Plasma cell myeloma
     Dosage: 4 MILLIGRAM
     Route: 048

REACTIONS (7)
  - Plasma cell myeloma [Unknown]
  - Neutropenia [Unknown]
  - Cough [Unknown]
  - Abdominal discomfort [Unknown]
  - Gout [Unknown]
  - Red blood cell count decreased [Unknown]
  - Rash [Unknown]
